FAERS Safety Report 9003158 (Version 1)
Quarter: 2013Q1

REPORT INFORMATION
  Report Type: Spontaneous
  Country: US (occurrence: US)
  Receive Date: 20130108
  Receipt Date: 20130108
  Transmission Date: 20140127
  Serious: No
  Sender: FDA-Public Use
  Company Number: US-ASTRAZENECA-2012SE92415

PATIENT
  Age: 58 Year
  Sex: Female
  Weight: 61.2 kg

DRUGS (4)
  1. CRESTOR [Suspect]
     Route: 048
     Dates: start: 201211
  2. ATTAROL [Concomitant]
  3. RIDILYN [Concomitant]
  4. UNSPECIFIED [Concomitant]
     Indication: ATTENTION DEFICIT/HYPERACTIVITY DISORDER

REACTIONS (9)
  - Balance disorder [Unknown]
  - Condition aggravated [Unknown]
  - Migraine [Unknown]
  - Musculoskeletal disorder [Unknown]
  - Pain [Unknown]
  - Vision blurred [Unknown]
  - Memory impairment [Unknown]
  - Muscle spasms [Unknown]
  - Drug dose omission [Unknown]
